FAERS Safety Report 18665129 (Version 3)
Quarter: 2021Q1

REPORT INFORMATION
  Report Type: Spontaneous
  Country: GB (occurrence: GB)
  Receive Date: 20201225
  Receipt Date: 20210225
  Transmission Date: 20210419
  Serious: Yes (Other)
  Sender: FDA-Public Use
  Company Number: GB-BIOVITRUM-2020GB7883

PATIENT
  Age: 58 Year
  Sex: Female

DRUGS (18)
  1. CO?DYDRAMOL [Concomitant]
     Active Substance: ACETAMINOPHEN\DIHYDROCODEINE
  2. ALENDRONIC ACID [Concomitant]
     Active Substance: ALENDRONIC ACID
     Dates: start: 2016
  3. HUX D3 [Concomitant]
     Dates: start: 2019
  4. ORFADIN [Suspect]
     Active Substance: NITISINONE
     Indication: ALKAPTONURIA
     Dates: start: 2012
  5. DICLOFENAC [Concomitant]
     Active Substance: DICLOFENAC
  6. HUX D3 [Concomitant]
     Dates: start: 2018
  7. DICLOFENAC [Concomitant]
     Active Substance: DICLOFENAC
     Dates: start: 2013
  8. CO?DYDRAMOL [Concomitant]
     Active Substance: ACETAMINOPHEN\DIHYDROCODEINE
     Dates: start: 2013
  9. PARACETAMOL [Concomitant]
     Active Substance: ACETAMINOPHEN
     Dates: start: 2013
  10. LIRIAL [Concomitant]
  11. ALENDRONIC ACID [Concomitant]
     Active Substance: ALENDRONIC ACID
     Dates: start: 2017
  12. DICLOFENAC [Concomitant]
     Active Substance: DICLOFENAC
     Dates: start: 2017
  13. PARACETAMOL [Concomitant]
     Active Substance: ACETAMINOPHEN
  14. LIRIAL [Concomitant]
     Dates: start: 2013
  15. DICLOFENAC [Concomitant]
     Active Substance: DICLOFENAC
     Dates: start: 2014
  16. ALENDRONIC ACID [Concomitant]
     Active Substance: ALENDRONIC ACID
     Dates: start: 2020
  17. OXIDIL [Concomitant]
     Active Substance: CEFTRIAXONE SODIUM
     Dosage: 3 20,000IU
     Dates: start: 2020
  18. ALENDRONIC ACID [Concomitant]
     Active Substance: ALENDRONIC ACID
     Dates: start: 2018

REACTIONS (3)
  - Lenticular opacities [Not Recovered/Not Resolved]
  - Cataract [Not Recovered/Not Resolved]
  - Amino acid level increased [Not Recovered/Not Resolved]
